FAERS Safety Report 17559247 (Version 1)
Quarter: 2020Q1

REPORT INFORMATION
  Report Type: Spontaneous
  Country: JP (occurrence: JP)
  Receive Date: 20200319
  Receipt Date: 20200319
  Transmission Date: 20200409
  Serious: Yes (Other)
  Sender: FDA-Public Use
  Company Number: JP-AUROBINDO-AUR-APL-2020-013826

PATIENT
  Age: 58 Year
  Sex: Male

DRUGS (10)
  1. CISPLATIN. [Suspect]
     Active Substance: CISPLATIN
     Indication: CHEMOTHERAPY
     Dosage: UNK
     Route: 065
  2. PREDNISOLONE. [Suspect]
     Active Substance: PREDNISOLONE
     Indication: PRODUCT USED FOR UNKNOWN INDICATION
     Dosage: 1 MILLIGRAM/KILOGRAM
     Route: 065
  3. CYTARABINE. [Suspect]
     Active Substance: CYTARABINE
     Indication: CHEMOTHERAPY
     Dosage: 100 MILLIGRAM/SQ. METER
     Route: 065
  4. TEGAFUR,GIMERACIL AND OTERACIL POTASSIUM [Suspect]
     Active Substance: GIMERACIL\OTERACIL\TEGAFUR
     Indication: CHEMOTHERAPY
     Dosage: UNK
     Route: 065
  5. FLUDARABINE [Suspect]
     Active Substance: FLUDARABINE PHOSPHATE
     Indication: BONE MARROW CONDITIONING REGIMEN
     Dosage: 30 MILLIGRAM/SQ. METER
     Route: 065
  6. METHOTREXATE. [Suspect]
     Active Substance: METHOTREXATE
     Indication: PROPHYLAXIS AGAINST GRAFT VERSUS HOST DISEASE
     Dosage: 10 MILLIGRAM/SQ. METER AT DAY 1
     Route: 065
  7. CICLOSPORIN [Suspect]
     Active Substance: CYCLOSPORINE
     Indication: PROPHYLAXIS AGAINST GRAFT VERSUS HOST DISEASE
     Dosage: 3 MILLIGRAM/KILOGRAM, DAILY (CONTINUOUS INFUSION FROM DAY-1)
     Route: 065
  8. MELPHALAN. [Suspect]
     Active Substance: MELPHALAN
     Indication: BONE MARROW CONDITIONING REGIMEN
     Dosage: 140 MILLIGRAM/SQ. METER
     Route: 065
  9. IDARUBICIN [Suspect]
     Active Substance: IDARUBICIN
     Indication: CHEMOTHERAPY
     Dosage: 12 MILLIGRAM/SQ. METER FOR 2 DAYS
     Route: 065
  10. METHOTREXATE. [Suspect]
     Active Substance: METHOTREXATE
     Dosage: 7 MILLIGRAM/SQ. METER (AT DAY 3, DAY 6 AND DAY 11)
     Route: 065

REACTIONS (6)
  - Posterior reversible encephalopathy syndrome [Recovered/Resolved]
  - Pruritus [Not Recovered/Not Resolved]
  - Seizure [Unknown]
  - Human herpesvirus 6 encephalitis [Recovered/Resolved]
  - Blood pressure increased [Unknown]
  - Mental status changes [Not Recovered/Not Resolved]
